FAERS Safety Report 17807487 (Version 2)
Quarter: 2020Q2

REPORT INFORMATION
  Report Type: Spontaneous
  Country: MX (occurrence: MX)
  Receive Date: 20200520
  Receipt Date: 20200628
  Transmission Date: 20200714
  Serious: Yes (Other)
  Sender: FDA-Public Use
  Company Number: MX-UCBSA-2018025967

PATIENT
  Age: 62 Year
  Sex: Female
  Weight: 61 kg

DRUGS (16)
  1. FOLIC ACID. [Concomitant]
     Active Substance: FOLIC ACID
     Indication: SUPPLEMENTATION THERAPY
     Dosage: 1 DF, ONCE DAILY (QD)
  2. CELLCEPT [Concomitant]
     Active Substance: MYCOPHENOLATE MOFETIL\MYCOPHENOLATE MOFETIL HYDROCHLORIDE
     Dosage: UNK, AS NEEDED (PRN)
     Route: 048
  3. FOLIC ACID. [Concomitant]
     Active Substance: FOLIC ACID
     Indication: OSTEOPOROSIS
     Dosage: 1 TABLET, IN THE MORNING
     Route: 048
  4. ZONISAMIDE. [Concomitant]
     Active Substance: ZONISAMIDE
     Indication: EPILEPSY
     Dosage: 1 TABLET, ONCE DAILY (QD)
     Route: 048
     Dates: start: 2018
  5. IRON [Concomitant]
     Active Substance: IRON
     Indication: OSTEOPOROSIS
     Dosage: UNK, IN THE MORNING
     Route: 048
  6. NORFLEX [Concomitant]
     Active Substance: ORPHENADRINE CITRATE
     Indication: MYALGIA
     Dosage: 1 TABLET, ONCE DAILY (QD)
     Route: 048
  7. BRIVIACT [Suspect]
     Active Substance: BRIVARACETAM
     Indication: EPILEPSY
     Dosage: UNK, 2X/DAY (BID)
     Route: 048
     Dates: start: 201807, end: 201807
  8. CELLCEPT [Concomitant]
     Active Substance: MYCOPHENOLATE MOFETIL\MYCOPHENOLATE MOFETIL HYDROCHLORIDE
     Indication: BEHCET^S SYNDROME
     Dosage: 1 DF, 2X/DAY (BID)
     Dates: start: 2008
  9. BRIVIACT [Suspect]
     Active Substance: BRIVARACETAM
     Indication: SEIZURE
  10. CALCIUM [Concomitant]
     Active Substance: CALCIUM
     Indication: SUPPLEMENTATION THERAPY
     Dosage: 1 DF, ONCE DAILY (QD)
  11. CALCIUM [Concomitant]
     Active Substance: CALCIUM
     Indication: OSTEOPOROSIS
     Dosage: 1 TABLET, IN THE MORNING
     Route: 048
  12. ZONISAMIDE. [Concomitant]
     Active Substance: ZONISAMIDE
     Indication: SEIZURE
  13. LAMICTAL [Concomitant]
     Active Substance: LAMOTRIGINE
     Indication: EPILEPSY
     Dosage: 150 MILLIGRAM, 2X/DAY (BID)
     Route: 048
     Dates: start: 2018
  14. LAMICTAL [Concomitant]
     Active Substance: LAMOTRIGINE
     Indication: SEIZURE
  15. BRIVIACT [Suspect]
     Active Substance: BRIVARACETAM
     Indication: PETIT MAL EPILEPSY
     Dosage: 50 MG, 1 DF, 2X/DAY (BID)
     Route: 048
     Dates: start: 20180605, end: 20180617
  16. VITAMIN D;VITAMIN E [Concomitant]
     Indication: OSTEOPOROSIS
     Dosage: 1 TABLET, IN THE MORNING
     Route: 048

REACTIONS (4)
  - Headache [Not Recovered/Not Resolved]
  - Somnolence [Not Recovered/Not Resolved]
  - Pruritus [Recovered/Resolved]
  - Hypersensitivity [Recovered/Resolved]

NARRATIVE: CASE EVENT DATE: 201806
